FAERS Safety Report 12351158 (Version 3)
Quarter: 2019Q3

REPORT INFORMATION
  Report Type: Spontaneous
  Country: GB (occurrence: GB)
  Receive Date: 20160510
  Receipt Date: 20190717
  Transmission Date: 20191004
  Serious: Yes (Other)
  Sender: FDA-Public Use
  Company Number: GB-JNJFOC-20160427679

PATIENT
  Sex: Male

DRUGS (4)
  1. FUMARIC ACID [Suspect]
     Active Substance: FUMARIC ACID
     Route: 065
     Dates: end: 201201
  2. FUMARIC ACID [Suspect]
     Active Substance: FUMARIC ACID
     Indication: PSORIASIS
     Route: 065
     Dates: start: 201012
  3. STELARA [Suspect]
     Active Substance: USTEKINUMAB
     Indication: PSORIASIS
     Route: 058
     Dates: start: 201004
  4. HYDREA [Suspect]
     Active Substance: HYDROXYUREA
     Indication: PSORIASIS
     Route: 065

REACTIONS (4)
  - Transient ischaemic attack [Unknown]
  - Psoriasis [Not Recovered/Not Resolved]
  - Drug ineffective [Unknown]
  - Adverse drug reaction [Unknown]

NARRATIVE: CASE EVENT DATE: 201506
